FAERS Safety Report 24257119 (Version 2)
Quarter: 2024Q3

REPORT INFORMATION
  Report Type: Report from Study
  Country: US (occurrence: US)
  Receive Date: 20240828
  Receipt Date: 20240904
  Transmission Date: 20241016
  Serious: Yes (Hospitalization, Other)
  Sender: ABBVIE
  Company Number: US-ABBVIE-5893893

PATIENT
  Sex: Female

DRUGS (1)
  1. SKYRIZI [Suspect]
     Active Substance: RISANKIZUMAB-RZAA
     Indication: Product used for unknown indication
     Route: 058
     Dates: start: 20240618

REACTIONS (4)
  - Hospitalisation [Unknown]
  - Intestinal obstruction [Unknown]
  - Procedural pain [Unknown]
  - Gastrointestinal dilation procedure [Unknown]

NARRATIVE: CASE EVENT DATE: 20240101
